FAERS Safety Report 15698032 (Version 1)
Quarter: 2018Q4

REPORT INFORMATION
  Report Type: Spontaneous
  Country: US (occurrence: US)
  Receive Date: 20181206
  Receipt Date: 20181206
  Transmission Date: 20190205
  Serious: Yes (Disabling, Other)
  Sender: FDA-Public Use
  Company Number: None

PATIENT
  Age: 65 Year
  Sex: Female

DRUGS (15)
  1. RESTASIS [Concomitant]
     Active Substance: CYCLOSPORINE
  2. XANAX (PRN) [Concomitant]
  3. PATANASE [Concomitant]
     Active Substance: OLOPATADINE HYDROCHLORIDE
  4. VITAMIN B [Concomitant]
     Active Substance: VITAMIN B
  5. LEXAPRO [Concomitant]
     Active Substance: ESCITALOPRAM OXALATE
  6. SELENIUM [Concomitant]
     Active Substance: SELENIUM
  7. ZOLEDRONIC ACID MANUFACTURED BY SAGENT [Suspect]
     Active Substance: ZOLEDRONIC ACID
     Indication: OSTEOPOROSIS
     Dosage: ?          QUANTITY:1 SINGLE INFUSION;OTHER FREQUENCY:ONCE YR  DOSAGE;?
     Route: 042
     Dates: start: 20181120, end: 20181120
  8. PAZEO EYE DROPS [Concomitant]
  9. CALCIUM [Concomitant]
     Active Substance: CALCIUM
  10. XYZAL [Concomitant]
     Active Substance: LEVOCETIRIZINE DIHYDROCHLORIDE
  11. HYDROXZINE 25 MG (PM) [Concomitant]
  12. EPI-PEN (PRN--NEVER USED) [Concomitant]
  13. VITAMIN D [Concomitant]
     Active Substance: CHOLECALCIFEROL
  14. WELLBUTRIN 300XL, [Concomitant]
  15. SINGULAIR [Concomitant]
     Active Substance: MONTELUKAST SODIUM

REACTIONS (3)
  - Anaphylactic reaction [None]
  - Gait disturbance [None]
  - Product substitution issue [None]

NARRATIVE: CASE EVENT DATE: 20181120
